FAERS Safety Report 7649829-7 (Version None)
Quarter: 2011Q3

REPORT INFORMATION
  Report Type: 
  Country: None (occurrence: None)
  Receive Date: 20110727
  Receipt Date: 20110719
  Transmission Date: 20111222
  Serious: Yes (Hospitalization)
  Sender: FDA-Public Use
  Company Number: 2010SP054733

PATIENT
  Age: 29 Year
  Sex: Female

DRUGS (1)
  1. NUVARING [Suspect]
     Indication: CONTRACEPTION
     Dosage: VAG
     Route: 067
     Dates: start: 20080601, end: 20081028

REACTIONS (7)
  - PANIC ATTACK [None]
  - PLATELET COUNT DECREASED [None]
  - PARTNER STRESS [None]
  - PERICARDIAL EFFUSION [None]
  - DEEP VEIN THROMBOSIS [None]
  - HORDEOLUM [None]
  - PULMONARY EMBOLISM [None]
